FAERS Safety Report 12339244 (Version 1)
Quarter: 2016Q2

REPORT INFORMATION
  Report Type: Spontaneous
  Country: US (occurrence: US)
  Receive Date: 20160505
  Receipt Date: 20160505
  Transmission Date: 20160815
  Serious: Yes (Other)
  Sender: FDA-Public Use
  Company Number: US-BAUSCH-BL-2016-009967

PATIENT
  Age: 25 Year
  Sex: Female

DRUGS (1)
  1. RETISERT [Suspect]
     Active Substance: FLUOCINOLONE ACETONIDE
     Indication: UVEITIS
     Route: 065

REACTIONS (4)
  - Aphakia [Unknown]
  - Device dislocation [Unknown]
  - Corneal oedema [Recovering/Resolving]
  - Intraocular pressure decreased [Unknown]
